FAERS Safety Report 8712690 (Version 3)
Quarter: 2012Q4

REPORT INFORMATION
  Report Type: 
  Country: US (occurrence: US)
  Receive Date: 20120808
  Receipt Date: 20121227
  Transmission Date: 20130627
  Serious: Yes (Hospitalization)
  Sender: FDA-Public Use
  Company Number: US-BAYER-2012-077778

PATIENT
  Age: 38 Year
  Sex: Female
  Weight: 63 kg

DRUGS (8)
  1. YASMIN [Suspect]
     Indication: ACNE
     Dosage: UNK
     Dates: start: 20040324, end: 20061025
  2. YASMIN [Suspect]
     Indication: CONTRACEPTION
  3. LUNESTA [Concomitant]
     Dosage: 2 mg, UNK
  4. LUNESTA [Concomitant]
  5. EFEDRON [Concomitant]
  6. HERBAL DIET PILLS [Concomitant]
  7. TYLENOL PM [Concomitant]
  8. PLAVIX [Concomitant]
     Dosage: 75 mg, UNK

REACTIONS (6)
  - Cerebrovascular accident [None]
  - Injury [None]
  - Pain [None]
  - Pain [None]
  - Speech disorder [None]
  - Balance disorder [None]
